FAERS Safety Report 25048139 (Version 1)
Quarter: 2025Q1

REPORT INFORMATION
  Report Type: Spontaneous
  Country: US (occurrence: US)
  Receive Date: 20250306
  Receipt Date: 20250306
  Transmission Date: 20250408
  Serious: No
  Sender: Haleon PLC
  Company Number: US-HALEON-2231284

PATIENT

DRUGS (1)
  1. SENSODYNE CLINICAL WHITE STAIN PROTECTOR [Suspect]
     Active Substance: POTASSIUM NITRATE\SODIUM FLUORIDE
     Indication: Dental disorder prophylaxis
     Dates: start: 20250228, end: 20250303

REACTIONS (4)
  - Gingival pain [Recovering/Resolving]
  - Noninfective gingivitis [Unknown]
  - Gingival discomfort [Unknown]
  - Gingival erythema [Recovering/Resolving]

NARRATIVE: CASE EVENT DATE: 20250228
